FAERS Safety Report 11341596 (Version 2)
Quarter: 2015Q3

REPORT INFORMATION
  Report Type: Report from Study
  Country: FR (occurrence: FR)
  Receive Date: 20150805
  Receipt Date: 20150827
  Transmission Date: 20151125
  Serious: Yes (Death, Other)
  Sender: FDA-Public Use
  Company Number: PHHY2015FR011872

PATIENT
  Sex: Male

DRUGS (2)
  1. LDK378 [Suspect]
     Active Substance: CERITINIB
     Dosage: 3 DF, QD
     Route: 048
     Dates: end: 20141024
  2. LDK378 [Suspect]
     Active Substance: CERITINIB
     Indication: NON-SMALL CELL LUNG CANCER
     Dosage: 5 DF, QD
     Route: 048
     Dates: start: 20140409

REACTIONS (4)
  - Death [Fatal]
  - Malignant neoplasm progression [Unknown]
  - Metastases to central nervous system [Unknown]
  - Non-small cell lung cancer [Unknown]
